FAERS Safety Report 21835898 (Version 1)
Quarter: 2023Q1

REPORT INFORMATION
  Report Type: Spontaneous
  Country: CA (occurrence: CA)
  Receive Date: 20230109
  Receipt Date: 20230109
  Transmission Date: 20230417
  Serious: Yes (Hospitalization)
  Sender: FDA-Public Use
  Company Number: CA-SAMSUNG BIOEPIS-SB-2023-00144

PATIENT
  Age: 10 Year
  Sex: Male

DRUGS (1)
  1. INFLIXIMAB [Suspect]
     Active Substance: INFLIXIMAB
     Indication: Colitis ulcerative
     Dosage: UNKNOWN
     Route: 065

REACTIONS (7)
  - Anal abscess [Not Recovered/Not Resolved]
  - Arthralgia [Not Recovered/Not Resolved]
  - Fistula [Not Recovered/Not Resolved]
  - Headache [Not Recovered/Not Resolved]
  - Pain in jaw [Not Recovered/Not Resolved]
  - Pyrexia [Not Recovered/Not Resolved]
  - Urticaria [Not Recovered/Not Resolved]
